FAERS Safety Report 6988379-8 (Version None)
Quarter: 2010Q3

REPORT INFORMATION
  Report Type: 
  Country: None (occurrence: None)
  Receive Date: 20100916
  Receipt Date: 20100907
  Transmission Date: 20110219
  Serious: Yes (Hospitalization, Other)
  Sender: FDA-Public Use
  Company Number: US-MERCK-1001USA01372

PATIENT
  Age: 66 Year
  Sex: Female

DRUGS (1)
  1. FOSAMAX [Suspect]
     Indication: CALCIUM DEFICIENCY
     Route: 048
     Dates: start: 20010501, end: 20090325

REACTIONS (55)
  - ADVERSE DRUG REACTION [None]
  - ANKLE FRACTURE [None]
  - ARTHRITIS ALLERGIC [None]
  - ATRIOVENTRICULAR BLOCK FIRST DEGREE [None]
  - ATROPHIC VULVOVAGINITIS [None]
  - BONE DENSITY DECREASED [None]
  - CARDIAC VALVE DISEASE [None]
  - CARDIOMEGALY [None]
  - CONVULSION [None]
  - DENTAL CARIES [None]
  - DEPRESSION [None]
  - DIARRHOEA [None]
  - DRUG INEFFECTIVE [None]
  - DRY MOUTH [None]
  - ENURESIS [None]
  - FAT TISSUE INCREASED [None]
  - FATIGUE [None]
  - FEMUR FRACTURE [None]
  - FIBROCYSTIC BREAST DISEASE [None]
  - FIBULA FRACTURE [None]
  - FOLATE DEFICIENCY [None]
  - GASTROOESOPHAGEAL REFLUX DISEASE [None]
  - GINGIVAL BLEEDING [None]
  - GINGIVAL SWELLING [None]
  - GINGIVITIS [None]
  - HAEMATURIA [None]
  - HAEMORRHOIDS [None]
  - HUMERUS FRACTURE [None]
  - HYPERLIPIDAEMIA [None]
  - HYPERPROTEINAEMIA [None]
  - INSOMNIA [None]
  - LIVER DISORDER [None]
  - LIVER FUNCTION TEST ABNORMAL [None]
  - LOSS OF CONSCIOUSNESS [None]
  - MALAISE [None]
  - MENISCUS LESION [None]
  - MENTAL STATUS CHANGES [None]
  - MIXED INCONTINENCE [None]
  - MUSCULOSKELETAL DISCOMFORT [None]
  - OEDEMA MOUTH [None]
  - OROPHARYNGEAL BLISTERING [None]
  - OSTEOARTHRITIS [None]
  - OSTEONECROSIS OF JAW [None]
  - OSTEOPENIA [None]
  - OTITIS EXTERNA [None]
  - PERIODONTITIS [None]
  - POLYNEUROPATHY [None]
  - RIB FRACTURE [None]
  - STRESS URINARY INCONTINENCE [None]
  - SYNCOPE [None]
  - SYNOVIAL CYST [None]
  - SYNOVITIS [None]
  - TIBIA FRACTURE [None]
  - TOOTH FRACTURE [None]
  - VITAMIN B12 DEFICIENCY [None]
